FAERS Safety Report 13599828 (Version 1)
Quarter: 2017Q2

REPORT INFORMATION
  Report Type: Spontaneous
  Country: US (occurrence: US)
  Receive Date: 20170531
  Receipt Date: 20170531
  Transmission Date: 20170830
  Serious: Yes (Death)
  Sender: FDA-Public Use
  Company Number: None

PATIENT
  Age: 85 Year
  Sex: Male

DRUGS (6)
  1. KERYDIN [Concomitant]
     Active Substance: TAVABOROLE
  2. QUINAPRIL. [Concomitant]
     Active Substance: QUINAPRIL
  3. CAEVEDILOL [Concomitant]
  4. DIGOXIN. [Concomitant]
     Active Substance: DIGOXIN
  5. FLUNISOLIDE. [Concomitant]
     Active Substance: FLUNISOLIDE
  6. ELIGARD [Suspect]
     Active Substance: LEUPROLIDE ACETATE
     Indication: PROSTATE CANCER
     Dosage: 45MG Q6M SC
     Route: 058
     Dates: start: 20140813

REACTIONS (1)
  - Death [None]

NARRATIVE: CASE EVENT DATE: 2017
